FAERS Safety Report 7771186-6 (Version None)
Quarter: 2011Q3

REPORT INFORMATION
  Report Type: 
  Country: None (occurrence: None)
  Receive Date: 20110922
  Receipt Date: 20110510
  Transmission Date: 20111222
  Serious: No
  Sender: FDA-Public Use
  Company Number: US-ASTRAZENECA-2011SE28871

PATIENT
  Age: 42 Year
  Sex: Female
  Weight: 121.6 kg

DRUGS (5)
  1. SEROQUEL [Suspect]
     Indication: TACHYPHRENIA
     Route: 048
     Dates: start: 20060101
  2. CINAMET [Concomitant]
  3. JANUMET [Concomitant]
  4. SEROQUEL [Suspect]
     Indication: BIPOLAR DISORDER
     Route: 048
     Dates: start: 20060101
  5. ALLOPURINOL [Concomitant]

REACTIONS (2)
  - INSOMNIA [None]
  - DRUG DOSE OMISSION [None]
